FAERS Safety Report 14597552 (Version 3)
Quarter: 2018Q2

REPORT INFORMATION
  Report Type: Spontaneous
  Country: GB (occurrence: GB)
  Receive Date: 20180305
  Receipt Date: 20180627
  Transmission Date: 20180711
  Serious: No
  Sender: FDA-Public Use
  Company Number: GB-009507513-1802GBR012349

PATIENT
  Age: 41 Year
  Sex: Male

DRUGS (3)
  1. ISENTRESS [Suspect]
     Active Substance: RALTEGRAVIR POTASSIUM
     Dosage: 1200 MG, QD
     Route: 048
     Dates: start: 20170924, end: 20171006
  2. TRUVADA [Concomitant]
     Active Substance: EMTRICITABINE\TENOFOVIR DISOPROXIL FUMARATE
     Dosage: UNK
  3. ISENTRESS [Suspect]
     Active Substance: RALTEGRAVIR POTASSIUM
     Indication: HIV TEST POSITIVE
     Dosage: 800 MG, QD
     Route: 048
     Dates: end: 201708

REACTIONS (15)
  - Dissociation [Recovered/Resolved]
  - Heart rate increased [Recovered/Resolved]
  - Oligodipsia [Recovered/Resolved]
  - Therapeutic response unexpected [Unknown]
  - Hyposmia [Recovered/Resolved]
  - Contraindicated product administered [Unknown]
  - Confusional state [Recovered/Resolved]
  - Pyrexia [Not Recovered/Not Resolved]
  - Hypertension [Recovered/Resolved]
  - Flat affect [Recovered/Resolved]
  - Tremor [Recovered/Resolved]
  - Tachycardia [Not Recovered/Not Resolved]
  - Headache [Recovered/Resolved]
  - Malaise [Not Recovered/Not Resolved]
  - Decreased appetite [Recovered/Resolved]
